FAERS Safety Report 8321146 (Version 6)
Quarter: 2014Q1

REPORT INFORMATION
  Report Type: Spontaneous
  Country: DK (occurrence: DK)
  Receive Date: 20120104
  Receipt Date: 20140124
  Transmission Date: 20141002
  Serious: Yes (Hospitalization, Other)
  Sender: FDA-Public Use
  Company Number: DK-PFIZER INC-2012000179

PATIENT
  Age: 42 Year
  Sex: Male
  Weight: 92 kg

DRUGS (1)
  1. CHAMPIX [Suspect]
     Indication: SMOKING CESSATION THERAPY
     Dosage: 1 MG, 2X/DAY
     Route: 048
     Dates: start: 20111014, end: 20111103

REACTIONS (17)
  - Cerebral haemorrhage [Recovering/Resolving]
  - Aphasia [Recovered/Resolved]
  - Dizziness [Recovered/Resolved]
  - Headache [Unknown]
  - Migraine with aura [Unknown]
  - Anxiety [Unknown]
  - Aggression [Unknown]
  - Dementia [Unknown]
  - Learning disability [Unknown]
  - Memory impairment [Unknown]
  - Disturbance in attention [Unknown]
  - Road traffic accident [Unknown]
  - Neck injury [Unknown]
  - Joint injury [Unknown]
  - Speech disorder [Unknown]
  - Crying [Unknown]
  - Fatigue [Unknown]
